FAERS Safety Report 24142502 (Version 1)
Quarter: 2024Q3

REPORT INFORMATION
  Report Type: Report from Study
  Country: CA (occurrence: None)
  Receive Date: 20240726
  Receipt Date: 20240726
  Transmission Date: 20241016
  Serious: Yes (Hospitalization, Other)
  Sender: ASTRAZENECA
  Company Number: 2020SE92408

PATIENT
  Age: 10768 Day
  Sex: Female

DRUGS (24)
  1. FASENRA [Suspect]
     Active Substance: BENRALIZUMAB
     Indication: Asthma
     Dosage: 30.0MG UNKNOWN
     Route: 058
     Dates: start: 20181012
  2. AZITHROMYCIN [Concomitant]
     Active Substance: AZITHROMYCIN
  3. SINGULAIR [Concomitant]
     Active Substance: MONTELUKAST SODIUM
  4. FLOVENT [Concomitant]
     Active Substance: FLUTICASONE PROPIONATE
  5. SPIRNOLACTONE [Concomitant]
  6. BASLAR [Concomitant]
  7. CALTRATE [Concomitant]
     Active Substance: CALCIUM CARBONATE
  8. DAPAGLIFLOZIN [Concomitant]
     Active Substance: DAPAGLIFLOZIN
  9. UNSPECIFIED INGREDIENT [Concomitant]
     Active Substance: UNSPECIFIED INGREDIENT
  10. ATROVENT [Concomitant]
     Active Substance: IPRATROPIUM BROMIDE
  11. ADVAIR HFA [Concomitant]
     Active Substance: FLUTICASONE PROPIONATE\SALMETEROL XINAFOATE
  12. VENTOLIN [Concomitant]
     Active Substance: ALBUTEROL SULFATE
  13. NOVORAPID [Concomitant]
     Active Substance: INSULIN ASPART
  14. VITAMIN D [Concomitant]
     Active Substance: VITAMIN D NOS
  15. VITAMIN B12 [Concomitant]
     Active Substance: CYANOCOBALAMIN
  16. FUROSEMIDE [Concomitant]
     Active Substance: FUROSEMIDE
  17. METFORMIN [Concomitant]
     Active Substance: METFORMIN HYDROCHLORIDE
  18. RABEPRAZOLE [Concomitant]
     Active Substance: RABEPRAZOLE
  19. PERINDOPRIL [Concomitant]
     Active Substance: PERINDOPRIL
  20. ROSUVASTATIN [Concomitant]
     Active Substance: ROSUVASTATIN\ROSUVASTATIN CALCIUM
  21. DILTIAZEM [Concomitant]
     Active Substance: DILTIAZEM
  22. FOLIC ACID [Concomitant]
     Active Substance: FOLIC ACID
  23. METHOTREXATE [Concomitant]
     Active Substance: METHOTREXATE
  24. PREDNISONE [Concomitant]
     Active Substance: PREDNISONE

REACTIONS (3)
  - Cellulitis [Recovered/Resolved]
  - Pulmonary oedema [Unknown]
  - Pericardial effusion [Unknown]
